FAERS Safety Report 4997186-7 (Version None)
Quarter: 2006Q2

REPORT INFORMATION
  Report Type: 
  Country: None (occurrence: None)
  Receive Date: 20060508
  Receipt Date: 20060508
  Transmission Date: 20061013
  Serious: Yes (Life-Threatening, Other)
  Sender: FDA-Public Use
  Company Number: None

PATIENT
  Age: 29 Year
  Sex: Female
  Weight: 78.9259 kg

DRUGS (2)
  1. HUMULIN 70/30 [Suspect]
     Dosage: 40 UNITS A DAY
     Dates: start: 20060108, end: 20060505
  2. HUMALOG [Suspect]
     Dosage: 15 UNITS A DAY
     Dates: start: 20060108, end: 20060505

REACTIONS (5)
  - BONE DISORDER [None]
  - EXOSTOSIS [None]
  - MUSCLE TIGHTNESS [None]
  - NERVE INJURY [None]
  - VISION BLURRED [None]
